FAERS Safety Report 14334897 (Version 6)
Quarter: 2022Q2

REPORT INFORMATION
  Report Type: Other
  Country: DE (occurrence: DE)
  Receive Date: 20171229
  Receipt Date: 20220505
  Transmission Date: 20220721
  Serious: Yes (Death, Other)
  Sender: FDA-Public Use
  Company Number: DE-MACLEODS PHARMACEUTICALS US LTD-MAC2017007578

PATIENT

DRUGS (23)
  1. DONEPEZIL [Interacting]
     Active Substance: DONEPEZIL
     Indication: Product used for unknown indication
     Dosage: UNK
     Route: 048
  2. METFORMIN [Interacting]
     Active Substance: METFORMIN HYDROCHLORIDE
     Indication: Product used for unknown indication
     Dosage: 500 MILLIGRAM
     Route: 048
  3. BISOPROLOL [Interacting]
     Active Substance: BISOPROLOL
     Indication: Product used for unknown indication
     Dosage: UNK
     Route: 048
  4. QUETIAPINE [Interacting]
     Active Substance: QUETIAPINE
     Indication: Product used for unknown indication
     Dosage: UNK, TABLET
     Route: 048
  5. QUETIAPINE [Interacting]
     Active Substance: QUETIAPINE
     Dosage: UNK
     Route: 048
  6. TAMSULOSIN [Interacting]
     Active Substance: TAMSULOSIN
     Indication: Product used for unknown indication
     Dosage: UNK
     Route: 048
  7. ALLOPURINOL [Interacting]
     Active Substance: ALLOPURINOL
     Indication: Product used for unknown indication
     Dosage: UNK
     Route: 048
  8. ALLOPURINOL [Interacting]
     Active Substance: ALLOPURINOL
     Dosage: UNK
     Route: 048
  9. APIDRA [Interacting]
     Active Substance: INSULIN GLULISINE
     Indication: Product used for unknown indication
     Dosage: UNK
     Route: 048
  10. APIDRA [Interacting]
     Active Substance: INSULIN GLULISINE
     Dosage: UNK
     Route: 048
  11. CANDESARTAN CILEXETIL\HYDROCHLOROTHIAZIDE [Interacting]
     Active Substance: CANDESARTAN CILEXETIL\HYDROCHLOROTHIAZIDE
     Indication: Product used for unknown indication
     Dosage: UNK
     Route: 048
  12. FALITHROM [Interacting]
     Active Substance: PHENPROCOUMON
     Indication: Product used for unknown indication
     Dosage: UNK
     Route: 048
  13. LANTUS [Interacting]
     Active Substance: INSULIN GLARGINE
     Indication: Product used for unknown indication
     Dosage: UNK
     Route: 048
  14. LEVOMEPROMAZINE [Interacting]
     Active Substance: LEVOMEPROMAZINE
     Indication: Product used for unknown indication
     Dosage: UNK
     Route: 048
  15. RISPERDAL [Interacting]
     Active Substance: RISPERIDONE
     Indication: Product used for unknown indication
     Dosage: UNK
     Route: 048
  16. SEROQUEL [Interacting]
     Active Substance: QUETIAPINE FUMARATE
     Indication: Product used for unknown indication
     Dosage: UNK
     Route: 048
  17. SIMVASTATIN [Interacting]
     Active Substance: SIMVASTATIN
     Indication: Product used for unknown indication
     Dosage: UNK
     Route: 048
  18. SIMVASTATIN [Interacting]
     Active Substance: SIMVASTATIN
     Dosage: UNK
     Route: 048
  19. TORSEMIDE [Interacting]
     Active Substance: TORSEMIDE
     Indication: Product used for unknown indication
     Dosage: UNK
     Route: 048
  20. RISPERIDONE [Interacting]
     Active Substance: RISPERIDONE
     Indication: Product used for unknown indication
     Dosage: UNK
     Route: 048
  21. TAMSULOSIN HYDROCHLORIDE [Interacting]
     Active Substance: TAMSULOSIN HYDROCHLORIDE
     Indication: Product used for unknown indication
     Dosage: UNK
     Route: 048
  22. TAMSULOSIN HYDROCHLORIDE [Interacting]
     Active Substance: TAMSULOSIN HYDROCHLORIDE
     Dosage: UNK
     Route: 048
  23. TORSEMIDE [Interacting]
     Active Substance: TORSEMIDE
     Indication: Product used for unknown indication
     Dosage: UNK
     Route: 048

REACTIONS (21)
  - Death [Fatal]
  - Renal failure [Unknown]
  - Intestinal haemorrhage [Unknown]
  - Gastric haemorrhage [Unknown]
  - Gastrointestinal haemorrhage [Unknown]
  - Cardiovascular disorder [Unknown]
  - Confusional state [Unknown]
  - Hyperhidrosis [Unknown]
  - Dizziness [Unknown]
  - Urinary incontinence [Unknown]
  - Contusion [Unknown]
  - Blood glucose abnormal [Unknown]
  - Fall [Unknown]
  - Adverse drug reaction [Unknown]
  - Haematoma [Unknown]
  - Cognitive disorder [Unknown]
  - Blood glucose fluctuation [Unknown]
  - Contraindicated product administered [Unknown]
  - Intentional product misuse [Unknown]
  - Balance disorder [Unknown]
  - Drug interaction [Unknown]

NARRATIVE: CASE EVENT DATE: 20170101
